FAERS Safety Report 9701672 (Version 1)
Quarter: 2013Q4

REPORT INFORMATION
  Report Type: Spontaneous
  Country: US (occurrence: US)
  Receive Date: 20131119
  Receipt Date: 20131119
  Transmission Date: 20140711
  Serious: No
  Sender: FDA-Public Use
  Company Number: -SAVIENT-2012S1000128

PATIENT
  Age: 42 Year
  Sex: Male

DRUGS (20)
  1. KRYSTEXXA [Suspect]
     Indication: GOUT
     Route: 042
     Dates: start: 20121009, end: 20121009
  2. KRYSTEXXA [Suspect]
     Indication: GOUT
     Route: 042
  3. KRYSTEXXA [Suspect]
     Indication: GOUT
     Route: 042
  4. KRYSTEXXA [Suspect]
     Indication: GOUT
     Route: 042
  5. KRYSTEXXA [Suspect]
     Indication: GOUT
     Route: 042
  6. KRYSTEXXA [Suspect]
     Indication: GOUT
     Route: 042
  7. KRYSTEXXA [Suspect]
     Indication: GOUT
     Route: 042
  8. KRYSTEXXA [Suspect]
     Indication: GOUT
     Route: 042
  9. KRYSTEXXA [Suspect]
     Indication: GOUT
     Route: 042
  10. KRYSTEXXA [Suspect]
     Indication: GOUT
     Route: 042
  11. KRYSTEXXA [Suspect]
     Indication: GOUT
     Route: 042
     Dates: start: 20120515, end: 20120515
  12. KRYSTEXXA [Suspect]
     Indication: GOUT
     Route: 042
     Dates: start: 20121106, end: 20121106
  13. COLCRYS [Concomitant]
     Indication: PRODUCT USED FOR UNKNOWN INDICATION
  14. LORTAB /01744401/ [Concomitant]
     Indication: PRODUCT USED FOR UNKNOWN INDICATION
  15. PREDNISONE [Concomitant]
     Indication: PRODUCT USED FOR UNKNOWN INDICATION
  16. LISINOPRIL [Concomitant]
     Indication: PRODUCT USED FOR UNKNOWN INDICATION
  17. IBUPROFEN [Concomitant]
     Indication: PRODUCT USED FOR UNKNOWN INDICATION
  18. ACETAMINOPHEN [Concomitant]
     Indication: ALLERGY PROPHYLAXIS
     Route: 048
  19. ALLEGRA [Concomitant]
     Indication: ALLERGY PROPHYLAXIS
     Route: 048
  20. SOLU-MEDROL [Concomitant]
     Indication: ALLERGY PROPHYLAXIS
     Route: 042

REACTIONS (2)
  - Eye swelling [Recovering/Resolving]
  - Therapeutic response decreased [Unknown]
